FAERS Safety Report 14497092 (Version 1)
Quarter: 2018Q1

REPORT INFORMATION
  Report Type: Spontaneous
  Country: US (occurrence: US)
  Receive Date: 20180206
  Receipt Date: 20180206
  Transmission Date: 20180509
  Serious: Yes (Hospitalization)
  Sender: FDA-Public Use
  Company Number: None

PATIENT
  Age: 73 Year
  Sex: Female

DRUGS (1)
  1. CUVITRU [Suspect]
     Active Substance: HUMAN IMMUNOGLOBULIN G
     Indication: IMMUNODEFICIENCY COMMON VARIABLE
     Dosage: 24 GRAMS EVERY 2 WEEKS SUBCUTANEOUSLY ??FROM 2010 OR 2011 TO PRESENT
     Route: 058
     Dates: start: 2010

REACTIONS (1)
  - Thrombosis [None]

NARRATIVE: CASE EVENT DATE: 20180129
